FAERS Safety Report 12129866 (Version 2)
Quarter: 2017Q1

REPORT INFORMATION
  Report Type: Other
  Country: US (occurrence: US)
  Receive Date: 20160229
  Receipt Date: 20170210
  Transmission Date: 20170428
  Serious: Yes (Disabling)
  Sender: FDA-Public Use
  Company Number: US-ACORDA-ACO_120314_2015

PATIENT
  Sex: Male
  Weight: 108.84 kg

DRUGS (3)
  1. AMPYRA [Suspect]
     Active Substance: DALFAMPRIDINE
     Indication: GAIT DISTURBANCE
     Dosage: 10 MG, BID
     Dates: start: 2015, end: 2015
  2. AMPYRA [Suspect]
     Active Substance: DALFAMPRIDINE
     Dosage: 10 MG, QD
     Route: 048
     Dates: start: 2015
  3. TYSABRI [Concomitant]
     Active Substance: NATALIZUMAB
     Indication: PRODUCT USED FOR UNKNOWN INDICATION
     Dosage: 300/MG/15 ML VIAL
     Route: 065
     Dates: start: 2015

REACTIONS (3)
  - Drug ineffective [Not Recovered/Not Resolved]
  - Abasia [Not Recovered/Not Resolved]
  - Fall [Not Recovered/Not Resolved]
